FAERS Safety Report 7585110-2 (Version None)
Quarter: 2011Q3

REPORT INFORMATION
  Report Type: 
  Country: None (occurrence: None)
  Receive Date: 20110701
  Receipt Date: 20110622
  Transmission Date: 20111222
  Serious: Yes (Hospitalization)
  Sender: FDA-Public Use
  Company Number: US-BIOGENIDEC-2010BI040658

PATIENT
  Age: 50 Year
  Sex: Female

DRUGS (1)
  1. TYSABRI [Suspect]
     Indication: MULTIPLE SCLEROSIS
     Route: 042
     Dates: start: 20070901

REACTIONS (7)
  - MULTIPLE SCLEROSIS [None]
  - TENDON RUPTURE [None]
  - MEMORY IMPAIRMENT [None]
  - LIGAMENT RUPTURE [None]
  - BUNION [None]
  - COGNITIVE DISORDER [None]
  - INFECTION [None]
